FAERS Safety Report 21217981 (Version 3)
Quarter: 2022Q3

REPORT INFORMATION
  Report Type: Report from Study
  Country: CA (occurrence: CA)
  Receive Date: 20220816
  Receipt Date: 20220920
  Transmission Date: 20221026
  Serious: Yes (Other)
  Sender: FDA-Public Use
  Company Number: CA-NOVARTISPH-NVSC2021CA294244

PATIENT
  Age: 44 Year
  Sex: Male

DRUGS (13)
  1. RITUXIMAB [Suspect]
     Active Substance: RITUXIMAB
     Indication: Granulomatosis with polyangiitis
     Dosage: 900 MG, QW  RESTARTED AT 25 ML/HR
     Route: 042
     Dates: start: 20211220
  2. RITUXIMAB [Suspect]
     Active Substance: RITUXIMAB
     Dosage: 900 MG, QW  (UPTO 4 WEEKS)
     Route: 042
  3. RITUXIMAB [Suspect]
     Active Substance: RITUXIMAB
     Dosage: 500 MG, EVERY 6 MONTHS FOR 4 DOSES
     Route: 042
  4. RITUXIMAB [Suspect]
     Active Substance: RITUXIMAB
     Dosage: 500 MG, (VIAL)
     Route: 042
  5. RITUXIMAB [Suspect]
     Active Substance: RITUXIMAB
     Dosage: 1000 MG
     Route: 042
  6. HYRIMOZ [Suspect]
     Active Substance: ADALIMUMAB-ADAZ
     Indication: Granulomatosis with polyangiitis
     Dosage: 500 MG, (VIAL)
     Route: 065
     Dates: start: 20211220
  7. SODIUM CHLORIDE [Suspect]
     Active Substance: SODIUM CHLORIDE
     Indication: Product used for unknown indication
     Dosage: 100 ML/HR, AT 13.20 PM DECREASED 100 ML/HR
     Route: 065
  8. BENADRYL [Concomitant]
     Active Substance: DIPHENHYDRAMINE HYDROCHLORIDE
     Indication: Product used for unknown indication
     Dosage: AT 12.30 PM
     Route: 042
  9. TYLENOL [Concomitant]
     Active Substance: ACETAMINOPHEN
     Indication: Product used for unknown indication
     Dosage: 650 MG AT 12.30
     Route: 048
  10. PREDNISONE [Concomitant]
     Active Substance: PREDNISONE
     Indication: Product used for unknown indication
     Dosage: UNK
     Route: 065
  11. ACETAMINOPHEN [Concomitant]
     Active Substance: ACETAMINOPHEN
     Indication: Product used for unknown indication
     Dosage: UNK, (PO 30MINS PRE-INFUSION)
     Route: 065
  12. METHYLPREDNISOLONE [Concomitant]
     Active Substance: METHYLPREDNISOLONE
     Indication: Product used for unknown indication
     Dosage: UNK, (30MIN PRE-INFUSION)
     Route: 042
  13. DIPHENHYDRAMINE [Concomitant]
     Active Substance: DIPHENHYDRAMINE
     Indication: Product used for unknown indication
     Dosage: UNK, (PO 30MIN PRE-INFUSION)
     Route: 065

REACTIONS (16)
  - Hypertension [Recovered/Resolved with Sequelae]
  - Somnolence [Unknown]
  - Pruritus [Unknown]
  - COVID-19 [Unknown]
  - Pyrexia [Recovered/Resolved]
  - Nausea [Unknown]
  - Pain [Recovered/Resolved]
  - Feeling abnormal [Unknown]
  - Chills [Recovered/Resolved]
  - Headache [Recovered/Resolved]
  - Throat irritation [Unknown]
  - Dyspepsia [Unknown]
  - Nasopharyngitis [Unknown]
  - Flushing [Unknown]
  - Product use in unapproved indication [Unknown]
  - Off label use [Unknown]

NARRATIVE: CASE EVENT DATE: 20211220
